FAERS Safety Report 18965007 (Version 1)
Quarter: 2021Q1

REPORT INFORMATION
  Report Type: Spontaneous
  Country: US (occurrence: US)
  Receive Date: 20210303
  Receipt Date: 20210303
  Transmission Date: 20210420
  Serious: No
  Sender: FDA-Public Use
  Company Number: US-AMNEAL PHARMACEUTICALS-2020-AMRX-01788

PATIENT
  Sex: Male

DRUGS (5)
  1. RYTARY [Suspect]
     Active Substance: CARBIDOPA\LEVODOPA
     Dosage: 3 CAPSULES, 4 /DAY,EVERY 3 HOURS FOR WEEK 1
     Route: 048
  2. RYTARY [Suspect]
     Active Substance: CARBIDOPA\LEVODOPA
     Dosage: 4 CAPSULES, 5 /DAY
     Route: 048
  3. RYTARY [Suspect]
     Active Substance: CARBIDOPA\LEVODOPA
     Dosage: 3 CAPSULES, 5 /DAY,EVERY 3 HOURS WEEK 2 AND ONWARDS
     Route: 048
  4. RYTARY [Suspect]
     Active Substance: CARBIDOPA\LEVODOPA
     Dosage: 21 CAPSULES, DAILY (5 CAPS 8AM, 4 CAPS AT 11:00AM, 2:00PM, 5:00PM, AND 8:00PM)
     Route: 048
     Dates: start: 20200717
  5. RYTARY [Suspect]
     Active Substance: CARBIDOPA\LEVODOPA
     Indication: PARKINSON^S DISEASE
     Dosage: 3 CAPSULES, TID
     Route: 048

REACTIONS (4)
  - Prescribed overdose [Unknown]
  - Therapy cessation [Unknown]
  - Drug ineffective [Unknown]
  - Therapeutic product effect variable [Unknown]
